FAERS Safety Report 7547569-6 (Version None)
Quarter: 2011Q2

REPORT INFORMATION
  Report Type: 
  Country: None (occurrence: None)
  Receive Date: 20110614
  Receipt Date: 20110601
  Transmission Date: 20111010
  Serious: Yes (Hospitalization, Other)
  Sender: FDA-Public Use
  Company Number: PHHY2011US39954

PATIENT
  Sex: Female

DRUGS (11)
  1. GLEEVEC [Suspect]
     Indication: CHRONIC MYELOID LEUKAEMIA
     Dosage: 100 MG, BID
     Route: 048
     Dates: start: 20050101
  2. COUMADIN [Concomitant]
     Indication: CEREBROVASCULAR ACCIDENT
     Dosage: 4 MG, UNK
     Route: 048
     Dates: start: 20080601
  3. MELOXICAM [Concomitant]
     Dosage: 7.5 MG, QD
     Route: 048
     Dates: start: 20090303
  4. DIGOXIN [Concomitant]
     Dosage: 0.125 MG, QD
     Route: 048
     Dates: start: 20060602
  5. CALCIUM CARBONATE [Concomitant]
     Indication: OSTEOPOROSIS
     Dosage: 600+200/150 TWICE DAILY
     Dates: start: 20080114
  6. ALENDRONATE SODIUM [Concomitant]
     Indication: OSTEOPOROSIS
     Dates: start: 20080823
  7. LEVOTHYROXINE SODIUM [Concomitant]
     Indication: HYPOTHYROIDISM
     Dosage: 0.05 MG, UNK
     Route: 048
     Dates: start: 20050808
  8. AMLODIPINE [Concomitant]
     Indication: HYPERTENSION
     Dosage: 10 MG, UNK
     Dates: start: 20060210
  9. HYDROCHLOROTHIAZIDE [Concomitant]
     Dosage: 25 MG, QD
     Route: 047
     Dates: start: 20050808
  10. K-DUR [Concomitant]
     Dosage: 20 MEQ, BID
     Route: 048
  11. METOPROLOL [Concomitant]
     Indication: HYPERTENSION
     Dosage: 25 MG, BID
     Route: 048
     Dates: start: 20060210

REACTIONS (9)
  - CEREBRAL INFARCTION [None]
  - LEUKOENCEPHALOPATHY [None]
  - ATRIAL FIBRILLATION [None]
  - AMNESIA [None]
  - DYSARTHRIA [None]
  - OEDEMA [None]
  - CEREBROVASCULAR ACCIDENT [None]
  - PAIN [None]
  - CEREBRAL ATROPHY [None]
